FAERS Safety Report 19109326 (Version 2)
Quarter: 2024Q1

REPORT INFORMATION
  Report Type: Spontaneous
  Country: DE (occurrence: DE)
  Receive Date: 20210409
  Receipt Date: 20240105
  Transmission Date: 20240410
  Serious: Yes (Hospitalization)
  Sender: FDA-Public Use
  Company Number: DE-AMGEN-DEUNI2020153488

PATIENT
  Age: 73 Year
  Sex: Female
  Weight: 82 kg

DRUGS (33)
  1. LEUCOVORIN [Suspect]
     Active Substance: LEUCOVORIN\LEUCOVORIN CALCIUM
     Indication: Colorectal cancer metastatic
     Dosage: 760 MILLIGRAM
     Route: 065
     Dates: start: 20200810
  2. LEUCOVORIN [Suspect]
     Active Substance: LEUCOVORIN\LEUCOVORIN CALCIUM
     Dosage: 360 MILLIGRAM
     Route: 065
     Dates: start: 20201019
  3. LEUCOVORIN [Suspect]
     Active Substance: LEUCOVORIN\LEUCOVORIN CALCIUM
     Dosage: 480 MILLIGRAM
     Route: 065
     Dates: start: 20201207
  4. IRINOTECAN [Suspect]
     Active Substance: IRINOTECAN
     Indication: Colorectal cancer metastatic
     Dosage: 340 MILLIGRAM
     Route: 065
     Dates: start: 20200810
  5. IRINOTECAN [Suspect]
     Active Substance: IRINOTECAN
     Dosage: 360 MILLIGRAM
     Route: 065
     Dates: start: 20201019
  6. IRINOTECAN [Suspect]
     Active Substance: IRINOTECAN
     Dosage: 170 MILLIGRAM
     Route: 065
     Dates: start: 20201109
  7. IRINOTECAN [Suspect]
     Active Substance: IRINOTECAN
     Dosage: 220 MILLIGRAM
     Route: 065
     Dates: start: 20201207
  8. IRINOTECAN [Suspect]
     Active Substance: IRINOTECAN
     Dosage: 260 MILLIGRAM
     Route: 065
     Dates: start: 20210628
  9. FLUOROURACIL [Suspect]
     Active Substance: FLUOROURACIL
     Indication: Colorectal cancer metastatic
     Dosage: 2260 MILLIGRAM
     Route: 042
     Dates: start: 20200810
  10. FLUOROURACIL [Suspect]
     Active Substance: FLUOROURACIL
     Dosage: 1500 MILLIGRAM
     Route: 040
     Dates: start: 20200810
  11. FLUOROURACIL [Suspect]
     Active Substance: FLUOROURACIL
     Dosage: 980 MILLIGRAM
     Route: 040
     Dates: start: 20200810
  12. FLUOROURACIL [Suspect]
     Active Substance: FLUOROURACIL
     Dosage: 1460 MILLIGRAM
     Route: 042
     Dates: start: 20201207
  13. FLUOROURACIL [Suspect]
     Active Substance: FLUOROURACIL
     Dosage: 1100 MILLIGRAM
     Route: 042
     Dates: start: 20201019
  14. FLUOROURACIL [Suspect]
     Active Substance: FLUOROURACIL
     Dosage: 740 MILLIGRAM
     Route: 040
     Dates: start: 20201019
  15. FLUOROURACIL [Suspect]
     Active Substance: FLUOROURACIL
     Dosage: 1700 MILLIGRAM
     Route: 040
     Dates: start: 20210628
  16. FLUOROURACIL [Suspect]
     Active Substance: FLUOROURACIL
     Dosage: 980 MILLIGRAM
     Route: 042
     Dates: start: 20201207
  17. FLUOROURACIL [Suspect]
     Active Substance: FLUOROURACIL
     Dosage: 1140 MILLIGRAM
     Route: 042
     Dates: start: 20210614
  18. PANITUMUMAB [Suspect]
     Active Substance: PANITUMUMAB
     Indication: Colorectal cancer metastatic
     Dosage: 500 MILLIGRAM
     Route: 042
     Dates: start: 20200810
  19. PANITUMUMAB [Suspect]
     Active Substance: PANITUMUMAB
     Dosage: 470 MILLIGRAM
     Route: 042
     Dates: start: 20200908
  20. PANITUMUMAB [Suspect]
     Active Substance: PANITUMUMAB
     Dosage: 480 MILLIGRAM
     Route: 042
     Dates: start: 20210413
  21. PANITUMUMAB [Suspect]
     Active Substance: PANITUMUMAB
     Dosage: 560 MILLIGRAM
     Route: 042
     Dates: start: 20210614
  22. BISOPROLOL [Concomitant]
     Active Substance: BISOPROLOL\BISOPROLOL FUMARATE
     Indication: Hypertension
     Dosage: 5 MILLIGRAM, ONCE A DAY
     Route: 048
  23. MOXONIDINE [Concomitant]
     Active Substance: MOXONIDINE
     Indication: Hypertension
     Dosage: 0.2 MILLIGRAM, ONCE A DAY
     Route: 048
  24. SYMBICORT [Concomitant]
     Active Substance: BUDESONIDE\FORMOTEROL FUMARATE DIHYDRATE
     Indication: Asthma
     Dosage: 640 MICROGRAM, TWO TIMES A DAY
  25. CANDESARTAN [Concomitant]
     Active Substance: CANDESARTAN
     Indication: Hypertension
     Dosage: 16 MILLIGRAM, TWO TIMES A DAY
     Route: 048
  26. METFORMIN [Concomitant]
     Active Substance: METFORMIN HYDROCHLORIDE
     Indication: Type 2 diabetes mellitus
     Dosage: 1000 MILLIGRAM, TWO TIMES A DAY
     Route: 048
  27. ENOXAPARIN SODIUM [Concomitant]
     Active Substance: ENOXAPARIN SODIUM
     Indication: Prophylaxis
     Dosage: 40 MILLIGRAM, ONCE A DAY
     Route: 058
     Dates: start: 202007
  28. SIMVASTATIN [Concomitant]
     Active Substance: SIMVASTATIN
     Indication: Hypercholesterolaemia
     Dosage: 10 MILLIGRAM, ONCE A DAY
     Route: 048
  29. JANUVIA [Concomitant]
     Active Substance: SITAGLIPTIN PHOSPHATE
     Indication: Type 2 diabetes mellitus
     Dosage: 50 MILLIGRAM, ONCE A DAY
     Route: 048
  30. PULMICORT TURBUHALER [Concomitant]
     Active Substance: BUDESONIDE
     Indication: Asthma
     Dosage: 1 MILLIGRAM, TWO TIMES A DAY
  31. Novalgin [Concomitant]
     Indication: Product used for unknown indication
     Dosage: 500 MILLIGRAM, AS NECESSARY
     Route: 048
     Dates: start: 202007
  32. AMLODIPINE [Concomitant]
     Active Substance: AMLODIPINE BESYLATE
     Indication: Hypertension
     Dosage: 5 MILLIGRAM, TWO TIMES A DAY
     Route: 048
  33. LEVOTHYROXINE SODIUM [Concomitant]
     Active Substance: LEVOTHYROXINE SODIUM
     Indication: Hypothyroidism
     Dosage: 175 MICROGRAM, ONCE A DAY
     Route: 048
     Dates: start: 1990

REACTIONS (1)
  - Stomatitis [Recovered/Resolved]

NARRATIVE: CASE EVENT DATE: 20200825
